FAERS Safety Report 25456792 (Version 1)
Quarter: 2025Q2

REPORT INFORMATION
  Report Type: Spontaneous
  Country: US (occurrence: US)
  Receive Date: 20250619
  Receipt Date: 20250619
  Transmission Date: 20250716
  Serious: No
  Sender: SANOFI AVENTIS
  Company Number: US-SA-2025SA171220

PATIENT
  Age: 45 Year
  Sex: Female
  Weight: 93.44 kg

DRUGS (6)
  1. DUPIXENT [Suspect]
     Active Substance: DUPILUMAB
     Indication: Asthma
     Dosage: 300 MG, QOW
     Route: 058
     Dates: start: 2024
  2. ESCITALOPRAM OXALATE [Concomitant]
     Active Substance: ESCITALOPRAM OXALATE
  3. DEXTROAMPHETAMINE [Concomitant]
     Active Substance: DEXTROAMPHETAMINE
  4. GABAPENTIN [Concomitant]
     Active Substance: GABAPENTIN
  5. DIAZEPAM [Concomitant]
     Active Substance: DIAZEPAM
  6. LEVOTHYROXINE SODIUM [Concomitant]
     Active Substance: LEVOTHYROXINE SODIUM

REACTIONS (2)
  - Skin swelling [Recovered/Resolved]
  - Calcinosis [Unknown]

NARRATIVE: CASE EVENT DATE: 20241201
